FAERS Safety Report 13129843 (Version 2)
Quarter: 2017Q1

REPORT INFORMATION
  Report Type: Spontaneous
  Country: IT (occurrence: IT)
  Receive Date: 20170119
  Receipt Date: 20170214
  Transmission Date: 20170428
  Serious: Yes (Hospitalization)
  Sender: FDA-Public Use
  Company Number: PHHY2017IT004623

PATIENT
  Age: 81 Year
  Sex: Female

DRUGS (3)
  1. GLIVEC [Suspect]
     Active Substance: IMATINIB MESYLATE
     Indication: CHRONIC MYELOID LEUKAEMIA
     Dosage: 400 MG, QD
     Route: 048
     Dates: start: 20160101, end: 20160901
  2. ALENDRONIC ACID [Suspect]
     Active Substance: ALENDRONIC ACID
     Indication: OSTEOPOROSIS
     Dosage: 70 MG, QW
     Route: 048
     Dates: start: 19970301, end: 20151101
  3. XARENEL [Concomitant]
     Indication: HYPOCALCAEMIA
     Dosage: 100000 U/ML, UNK
     Route: 065

REACTIONS (5)
  - Exposed bone in jaw [Unknown]
  - Osteitis [Recovered/Resolved with Sequelae]
  - Mucous membrane disorder [Unknown]
  - Bone fragmentation [Unknown]
  - Primary sequestrum [Unknown]

NARRATIVE: CASE EVENT DATE: 20160303
